FAERS Safety Report 16405870 (Version 1)
Quarter: 2019Q2

REPORT INFORMATION
  Report Type: Spontaneous
  Country: US (occurrence: US)
  Receive Date: 20190607
  Receipt Date: 20190607
  Transmission Date: 20190711
  Serious: No
  Sender: FDA-Public Use
  Company Number: US-B.I. PHARMACEUTICALS,INC./RIDGEFIELD-2019-BI-024622

PATIENT
  Sex: Male

DRUGS (5)
  1. COMBIVENT [Suspect]
     Active Substance: ALBUTEROL SULFATE\IPRATROPIUM BROMIDE
     Indication: CHRONIC OBSTRUCTIVE PULMONARY DISEASE
     Dosage: FORM STRENGTH: 20 MCG / 100 MCG;
     Route: 055
     Dates: start: 2019, end: 2019
  2. SPIRIVA [Suspect]
     Active Substance: TIOTROPIUM BROMIDE MONOHYDRATE
     Dosage: ONE CAPSULE DAILY;  FORM STRENGTH: 18 MCG; FORMULATION: CAPSULE?YES ?DRUG WITHDRAWN
     Route: 055
     Dates: start: 2019, end: 201905
  3. SPIRIVA [Suspect]
     Active Substance: TIOTROPIUM BROMIDE MONOHYDRATE
     Indication: CHRONIC OBSTRUCTIVE PULMONARY DISEASE
     Dosage: ONE CAPSULE A DAY;  FORM STRENGTH: 18 MCG; FORMULATION: CAPSULE
     Route: 055
     Dates: end: 2019
  4. SPIRIVA RESPIMAT [Suspect]
     Active Substance: TIOTROPIUM BROMIDE
     Indication: CHRONIC OBSTRUCTIVE PULMONARY DISEASE
     Dosage: FORM STRENGTH: 2.5 MCG; FORMULATION: INHALATION SPRAY
     Route: 055
     Dates: start: 201905, end: 201905
  5. SPIRIVA [Suspect]
     Active Substance: TIOTROPIUM BROMIDE MONOHYDRATE
     Dosage: ONE TABLET DAILY;  FORM STRENGTH: 18 MCG; FORMULATION: CAPSULE? YES ?DOSE NOT CHANGED
     Route: 055
     Dates: start: 201905

REACTIONS (2)
  - Cough [Recovered/Resolved]
  - Dyspnoea exertional [Not Recovered/Not Resolved]

NARRATIVE: CASE EVENT DATE: 2012
